FAERS Safety Report 8562896-1 (Version None)
Quarter: 2012Q3

REPORT INFORMATION
  Report Type: 
  Country: None (occurrence: None)
  Receive Date: 20120802
  Receipt Date: 20120719
  Transmission Date: 20120928
  Serious: No
  Sender: FDA-Public Use
  Company Number: US-AMGEN-USASP2012045077

PATIENT
  Age: 70 Year
  Sex: Male

DRUGS (1)
  1. ENBREL [Suspect]
     Indication: PSORIASIS
     Dosage: 50 MG, 2 TIMES/WK
     Dates: start: 20110928

REACTIONS (5)
  - SKIN DISCOLOURATION [None]
  - CONTUSION [None]
  - ANXIETY [None]
  - PRURITUS GENERALISED [None]
  - INSOMNIA [None]
